FAERS Safety Report 18368806 (Version 2)
Quarter: 2020Q4

REPORT INFORMATION
  Report Type: Spontaneous
  Country: US (occurrence: US)
  Receive Date: 20201011
  Receipt Date: 20201127
  Transmission Date: 20210114
  Serious: No
  Sender: FDA-Public Use
  Company Number: US-ASTRAZENECA-2020SF27062

PATIENT
  Age: 72 Year
  Sex: Male
  Weight: 117.9 kg

DRUGS (1)
  1. BYDUREON BCISE [Suspect]
     Active Substance: EXENATIDE
     Indication: TYPE 2 DIABETES MELLITUS
     Route: 065
     Dates: start: 202004

REACTIONS (3)
  - Injection site pain [Unknown]
  - Wrong technique in device usage process [Unknown]
  - Product closure removal difficult [Unknown]

NARRATIVE: CASE EVENT DATE: 2020
